FAERS Safety Report 6931498-2 (Version None)
Quarter: 2010Q3

REPORT INFORMATION
  Report Type: 
  Country: None (occurrence: None)
  Receive Date: 20100816
  Receipt Date: 20100805
  Transmission Date: 20110219
  Serious: Yes (Hospitalization)
  Sender: FDA-Public Use
  Company Number: 2010SP042747

PATIENT
  Age: 51 Year
  Sex: Male

DRUGS (2)
  1. INTERFERON [Suspect]
     Indication: MULTIPLE SCLEROSIS
  2. COPAXONE [Suspect]
     Indication: MULTIPLE SCLEROSIS

REACTIONS (5)
  - COLITIS ULCERATIVE [None]
  - FATIGUE [None]
  - MALAISE [None]
  - PYREXIA [None]
  - WALKING AID USER [None]
